FAERS Safety Report 12376530 (Version 1)
Quarter: 2016Q2

REPORT INFORMATION
  Report Type: Spontaneous
  Country: US (occurrence: US)
  Receive Date: 20160517
  Receipt Date: 20160517
  Transmission Date: 20160815
  Serious: No
  Sender: FDA-Public Use
  Company Number: US-TEIKOKU PHARMA USA-TPU2016-00040

PATIENT
  Sex: Female
  Weight: 59.02 kg

DRUGS (4)
  1. LIDOCAINE PATCH [Suspect]
     Active Substance: LIDOCAINE
     Indication: BACK PAIN
     Route: 061
  2. CELECOXIB. [Suspect]
     Active Substance: CELECOXIB
  3. ALL THE PAIN MEDICATIONS [Suspect]
     Active Substance: UNSPECIFIED INGREDIENT
  4. ALL ANTI-INFLAMMATORIES [Suspect]
     Active Substance: UNSPECIFIED INGREDIENT

REACTIONS (7)
  - Disturbance in attention [Not Recovered/Not Resolved]
  - Nausea [Recovered/Resolved]
  - Herpes zoster [Unknown]
  - Nervousness [Not Recovered/Not Resolved]
  - Headache [Recovered/Resolved]
  - Body height decreased [Not Recovered/Not Resolved]
  - Hot flush [Not Recovered/Not Resolved]
